FAERS Safety Report 12742977 (Version 1)
Quarter: 2016Q3

REPORT INFORMATION
  Report Type: Spontaneous
  Country: US (occurrence: US)
  Receive Date: 20160914
  Receipt Date: 20160914
  Transmission Date: 20161109
  Serious: Yes (Hospitalization)
  Sender: FDA-Public Use
  Company Number: US-SIGMA-TAU US-2015STPI000896

PATIENT
  Age: 6 Year
  Sex: Female

DRUGS (1)
  1. MATULANE [Suspect]
     Active Substance: PROCARBAZINE HYDROCHLORIDE
     Indication: BRAIN NEOPLASM MALIGNANT
     Dosage: 50 MG, Q6H, X1 DAY
     Route: 048
     Dates: start: 20150919, end: 20150919

REACTIONS (3)
  - Pain [None]
  - Hyperaesthesia [Unknown]
  - Dysstasia [Unknown]

NARRATIVE: CASE EVENT DATE: 20151109
